FAERS Safety Report 5935621-8 (Version None)
Quarter: 2008Q4

REPORT INFORMATION
  Report Type: 
  Country: None (occurrence: None)
  Receive Date: 20081030
  Receipt Date: 20081021
  Transmission Date: 20090506
  Serious: Yes (Other)
  Sender: FDA-Public Use
  Company Number: D0059106A

PATIENT
  Sex: Female

DRUGS (1)
  1. EPIVIR [Suspect]
     Route: 065

REACTIONS (1)
  - HAEMOLYSIS [None]
